FAERS Safety Report 26098064 (Version 1)
Quarter: 2025Q4

REPORT INFORMATION
  Report Type: Report from Study
  Country: US (occurrence: US)
  Receive Date: 20251127
  Receipt Date: 20251127
  Transmission Date: 20260117
  Serious: No
  Sender: IPSEN BIOPHARMACEUTICALS, INC.
  Company Number: US-IPSEN Group, Research and Development-2025-28631

PATIENT

DRUGS (1)
  1. BYLVAY [Suspect]
     Active Substance: ODEVIXIBAT
     Indication: Product used for unknown indication
     Route: 048

REACTIONS (3)
  - Hepatic enzyme increased [Unknown]
  - Therapy non-responder [Unknown]
  - Hypovitaminosis [Unknown]
